FAERS Safety Report 9868344 (Version 1)
Quarter: 2014Q1

REPORT INFORMATION
  Report Type: Spontaneous
  Country: US (occurrence: US)
  Receive Date: 20140204
  Receipt Date: 20140204
  Transmission Date: 20141002
  Serious: Yes (Other)
  Sender: FDA-Public Use
  Company Number: US-INCYTE CORPORATION-2014IN000214

PATIENT
  Sex: Female

DRUGS (13)
  1. JAKAFI [Suspect]
     Indication: MYELOFIBROSIS
     Dosage: 15 MG, BID
     Route: 048
     Dates: start: 201210
  2. XANAX [Concomitant]
  3. DICYCLOMINE                        /00068601/ [Concomitant]
  4. VAGIFEM [Concomitant]
  5. TRAMADOL HCL [Concomitant]
  6. COQ-10 [Concomitant]
  7. FISH OIL [Concomitant]
  8. CRANBERRY                          /01512301/ [Concomitant]
     Dosage: UNK
  9. SUMATRIPTAN [Concomitant]
  10. ACIDOPHILUS [Concomitant]
  11. LACTOBACILLUS SPOROGENES [Concomitant]
  12. VITAMIN D                          /00107901/ [Concomitant]
  13. GARLIC                             /01570501/ [Concomitant]

REACTIONS (1)
  - Breast cancer [Unknown]
